FAERS Safety Report 15375913 (Version 1)
Quarter: 2018Q3

REPORT INFORMATION
  Report Type: Spontaneous
  Country: FR (occurrence: FR)
  Receive Date: 20180912
  Receipt Date: 20180912
  Transmission Date: 20181010
  Serious: Yes (Hospitalization)
  Sender: FDA-Public Use
  Company Number: FR-TEVA-2018-FR-954007

PATIENT
  Age: 79 Year
  Sex: Female

DRUGS (10)
  1. ACTONEL [Suspect]
     Active Substance: RISEDRONATE SODIUM
     Indication: OSTEOPOROTIC FRACTURE
     Route: 048
     Dates: start: 201801
  2. HUMIRA [Suspect]
     Active Substance: ADALIMUMAB
     Indication: RHEUMATOID ARTHRITIS
     Route: 058
     Dates: start: 201805, end: 20180801
  3. CALCIUM (ACETATE DE) [Concomitant]
  4. ESOMEPRAZOLE [Concomitant]
     Active Substance: ESOMEPRAZOLE
  5. IZALGI 500 MG/25 MG, G?LULE [Concomitant]
     Active Substance: ACETAMINOPHEN\OPIUM
  6. CORTANCYL [Suspect]
     Active Substance: PREDNISONE
     Indication: RHEUMATOID ARTHRITIS
     Dosage: 6 MILLIGRAM DAILY;
     Route: 048
     Dates: start: 201805
  7. RIFINAH 300 MG/150 MG, COMPRIM? ENROB? [Concomitant]
  8. DOLIPRANE [Concomitant]
     Active Substance: ACETAMINOPHEN
  9. LEVOTHYROX [Concomitant]
     Active Substance: LEVOTHYROXINE
  10. CHOLECALCIFEROL [Concomitant]
     Active Substance: CHOLECALCIFEROL

REACTIONS (1)
  - Fractured sacrum [Recovering/Resolving]

NARRATIVE: CASE EVENT DATE: 20180809
